FAERS Safety Report 22625489 (Version 1)
Quarter: 2023Q2

REPORT INFORMATION
  Report Type: Spontaneous
  Country: US (occurrence: None)
  Receive Date: 20230616
  Receipt Date: 20230616
  Transmission Date: 20230721
  Serious: Yes (Hospitalization)
  Sender: FDA-Public Use
  Company Number: None

PATIENT
  Sex: Female

DRUGS (1)
  1. VERZENIO [Suspect]
     Active Substance: ABEMACICLIB
     Dosage: 50MG 2 TIMES DAILY ORAL?
     Route: 048
     Dates: start: 202209

REACTIONS (5)
  - Sepsis [None]
  - Cellulitis [None]
  - Asthenia [None]
  - Full blood count abnormal [None]
  - Therapy interrupted [None]
